FAERS Safety Report 5648283-4 (Version None)
Quarter: 2008Q1

REPORT INFORMATION
  Report Type: 
  Country: None (occurrence: None)
  Receive Date: 20080131
  Receipt Date: 20071015
  Transmission Date: 20080703
  Serious: No
  Sender: FDA-Public Use
  Company Number: US200708003200

PATIENT
  Age: 64 Year
  Sex: Female
  Weight: 107 kg

DRUGS (14)
  1. BYETTA [Suspect]
     Indication: TYPE 2 DIABETES MELLITUS
     Dosage: 5 UG, 2/D, SUBCUTANEOUS ; 10 UG, 2/D, SUBCUTANEOUS
     Route: 058
     Dates: start: 20050301, end: 20060101
  2. BYETTA [Suspect]
     Indication: TYPE 2 DIABETES MELLITUS
     Dosage: 5 UG, 2/D, SUBCUTANEOUS ; 10 UG, 2/D, SUBCUTANEOUS
     Route: 058
     Dates: start: 20060101, end: 20070101
  3. AMITRIPTLINE HCL [Concomitant]
  4. ASPIRIN [Concomitant]
  5. CALCIUM (CALCIUM) [Concomitant]
  6. FENOFIBRATE [Concomitant]
  7. GLIPIZIDE (GLIPIIZIDE) [Concomitant]
  8. NIFEREX (POLYSACCHARIDE-IRON COMPLEX) [Concomitant]
  9. LEVOTHROID [Concomitant]
  10. LOVASTATIN [Concomitant]
  11. OCUVITE (ASCORBIC ACID, RETINOL, TOCOPHEROL) [Concomitant]
  12. OMEPRAZOLE [Concomitant]
  13. PROPRANOLOL [Concomitant]
  14. VITAMIN B [Concomitant]

REACTIONS (3)
  - ANAEMIA [None]
  - LABORATORY TEST ABNORMAL [None]
  - WEIGHT DECREASED [None]
